FAERS Safety Report 9460780 (Version 1)
Quarter: 2013Q3

REPORT INFORMATION
  Report Type: Spontaneous
  Country: FR (occurrence: FR)
  Receive Date: 20130815
  Receipt Date: 20130815
  Transmission Date: 20140515
  Serious: Yes (Hospitalization)
  Sender: FDA-Public Use
  Company Number: FR-GLAXOSMITHKLINE-B0914139A

PATIENT
  Age: 41 Year
  Sex: Female

DRUGS (6)
  1. REVOLADE [Suspect]
     Indication: IMMUNE THROMBOCYTOPENIC PURPURA
     Route: 048
     Dates: start: 201111, end: 20130716
  2. PLAQUENIL [Concomitant]
     Indication: SYSTEMIC LUPUS ERYTHEMATOSUS
     Dosage: 200MG TWICE PER DAY
     Route: 048
     Dates: start: 201306
  3. CORTANCYL [Concomitant]
     Indication: SYSTEMIC LUPUS ERYTHEMATOSUS
     Dosage: 30MG PER DAY
     Route: 048
     Dates: start: 201307
  4. BIPROFENID [Concomitant]
     Indication: ARTHRALGIA
     Route: 065
     Dates: end: 201307
  5. OXYCODONE [Concomitant]
     Indication: ARTHRALGIA
     Route: 065
     Dates: end: 201307
  6. INEXIUM [Concomitant]
     Indication: PRODUCT USED FOR UNKNOWN INDICATION
     Route: 065

REACTIONS (1)
  - Myocardial infarction [Recovering/Resolving]
